FAERS Safety Report 24701468 (Version 3)
Quarter: 2025Q1

REPORT INFORMATION
  Report Type: Spontaneous
  Country: US (occurrence: US)
  Receive Date: 20241205
  Receipt Date: 20250101
  Transmission Date: 20250409
  Serious: No
  Sender: ROCHE
  Company Number: US-ROCHE-10000145766

PATIENT
  Sex: Female

DRUGS (11)
  1. ZELBORAF [Suspect]
     Active Substance: VEMURAFENIB
     Indication: Metastases to central nervous system
     Route: 048
     Dates: start: 20241010
  2. COTELLIC [Suspect]
     Active Substance: COBIMETINIB FUMARATE
     Indication: Metastases to central nervous system
     Route: 065
  3. ALPRAZOLAM TAB 0.25MG [Concomitant]
  4. AMLODIPINE TAB 5MG [Concomitant]
  5. BRAFTOVI [Concomitant]
     Active Substance: ENCORAFENIB
  6. DEXAMETHASON TAB 1MG [Concomitant]
  7. DEXAMETHASON TAB 1MG [Concomitant]
  8. DEXAMETHASON TAB 1MG [Concomitant]
  9. DIPHEN/ATROP TAB 2.5MG [Concomitant]
  10. GABAPENTIN CAP 100MG [Concomitant]
  11. HYDROCORT TAB 5MG [Concomitant]

REACTIONS (2)
  - Off label use [Unknown]
  - No adverse event [Unknown]
